FAERS Safety Report 16475196 (Version 2)
Quarter: 2019Q3

REPORT INFORMATION
  Report Type: Spontaneous
  Country: US (occurrence: US)
  Receive Date: 20190625
  Receipt Date: 20190822
  Transmission Date: 20191004
  Serious: Yes (Hospitalization)
  Sender: FDA-Public Use
  Company Number: US-PARI RESPIRATORY EQUIPMENT, INC.-2019PAR00044

PATIENT
  Age: 15 Year
  Sex: Male

DRUGS (10)
  1. PREVACID [Concomitant]
     Active Substance: LANSOPRAZOLE
  2. ZENPEP [Concomitant]
     Active Substance: PANCRELIPASE AMYLASE\PANCRELIPASE LIPASE\PANCRELIPASE PROTEASE
  3. AZITHROMYCIN ANHYDROUS. [Concomitant]
     Active Substance: AZITHROMYCIN ANHYDROUS
  4. KITABIS PAK [Suspect]
     Active Substance: TOBRAMYCIN
     Indication: CYSTIC FIBROSIS
     Dosage: 5 ML, 2X/DAY
     Route: 048
     Dates: start: 20171031
  5. KITABIS PAK [Suspect]
     Active Substance: TOBRAMYCIN
     Dosage: 5 ML, 2X/DAY
     Dates: start: 20171227
  6. PULMOZYME [Concomitant]
     Active Substance: DORNASE ALFA
  7. KITABIS PAK [Suspect]
     Active Substance: TOBRAMYCIN
     Dosage: 5 ML, 2X/DAY (28 DAYS ON)
     Dates: start: 20171227
  8. CAYSTON [Suspect]
     Active Substance: AZTREONAM
  9. ADVAIR HFA [Concomitant]
     Active Substance: FLUTICASONE PROPIONATE\SALMETEROL XINAFOATE
  10. PROVENTIL HFA [Concomitant]
     Active Substance: ALBUTEROL SULFATE

REACTIONS (2)
  - Cystic fibrosis [Unknown]
  - Haemoptysis [Unknown]

NARRATIVE: CASE EVENT DATE: 201905
